FAERS Safety Report 6825136-7 (Version None)
Quarter: 2010Q3

REPORT INFORMATION
  Report Type: 
  Country: None (occurrence: None)
  Receive Date: 20100708
  Receipt Date: 20070203
  Transmission Date: 20110219
  Serious: Yes (Other)
  Sender: FDA-Public Use
  Company Number: US-PFIZER INC-2006142142

PATIENT
  Sex: Male
  Weight: 88 kg

DRUGS (6)
  1. CHANTIX [Suspect]
     Indication: SMOKING CESSATION THERAPY
     Dates: start: 20061106, end: 20061113
  2. CHANTIX [Suspect]
     Indication: TOBACCO ABUSE
  3. NEXIUM [Concomitant]
     Indication: BARRETT'S OESOPHAGUS
  4. METHADONE [Concomitant]
  5. LORAZEPAM [Concomitant]
  6. VITAMINS [Concomitant]

REACTIONS (3)
  - LACRIMATION INCREASED [None]
  - NIGHT BLINDNESS [None]
  - VISION BLURRED [None]
